FAERS Safety Report 5060117-8 (Version None)
Quarter: 2006Q3

REPORT INFORMATION
  Report Type: 
  Country: None (occurrence: None)
  Receive Date: 20060719
  Receipt Date: 20060707
  Transmission Date: 20061208
  Serious: Yes (Hospitalization)
  Sender: FDA-Public Use
  Company Number: 2006-145339-NL

PATIENT
  Age: 17 Year
  Sex: Male

DRUGS (7)
  1. MIRTAZAPINE [Suspect]
     Dosage: 15 MG ORAL
     Route: 048
     Dates: start: 20060611, end: 20060612
  2. CITALOPRAM HYDROBROMIDE [Suspect]
     Indication: DEPRESSION
     Dosage: 40 MG ORAL
     Route: 048
     Dates: end: 20060612
  3. CITALOPRAM HYDROBROMIDE [Suspect]
     Indication: DISEASE RECURRENCE
     Dosage: 40 MG ORAL
     Route: 048
     Dates: end: 20060612
  4. LEVOMEPROMAZINE MALEATE [Suspect]
     Indication: ANTISOCIAL BEHAVIOUR
     Dosage: 25 MG ORAL
     Route: 048
     Dates: start: 20060608, end: 20060611
  5. CLOMETHIAZOLE EDISILATE [Suspect]
     Indication: DELIRIUM
     Dosage: 2 DF ORAL
     Route: 048
     Dates: start: 20060613, end: 20060613
  6. BIPERIDEN HYDROCHLORIDE TAB [Suspect]
     Indication: EXTRAPYRAMIDAL DISORDER
     Dosage: 2 MG ORAL
     Route: 048
     Dates: start: 20060612, end: 20060612
  7. BIPERIDEN HYDROCHLORIDE TAB [Suspect]
     Indication: MOVEMENT DISORDER
     Dosage: 2 MG ORAL
     Route: 048
     Dates: start: 20060612, end: 20060612

REACTIONS (5)
  - DELIRIUM [None]
  - EXTRAPYRAMIDAL DISORDER [None]
  - LOSS OF CONSCIOUSNESS [None]
  - SUICIDAL IDEATION [None]
  - TENSION [None]
